FAERS Safety Report 25838461 (Version 1)
Quarter: 2025Q3

REPORT INFORMATION
  Report Type: Spontaneous
  Country: EU (occurrence: EU)
  Receive Date: 20250923
  Receipt Date: 20250923
  Transmission Date: 20251021
  Serious: Yes (Other)
  Sender: AMGEN
  Company Number: EU-AMGEN-ESPSP2025185798

PATIENT
  Age: 57 Year
  Sex: Male

DRUGS (5)
  1. APREMILAST [Suspect]
     Active Substance: APREMILAST
     Indication: Cutaneous lupus erythematosus
     Dosage: 60 MILLIGRAM, QD
     Route: 065
  2. APREMILAST [Suspect]
     Active Substance: APREMILAST
     Indication: Off label use
  3. HYDROXYCHLOROQUINE [Concomitant]
     Active Substance: HYDROXYCHLOROQUINE
     Dosage: 400 MILLIGRAM, QD
     Route: 065
  4. METHOTREXATE [Concomitant]
     Active Substance: METHOTREXATE
     Dosage: 17.5 NANOGRAM, QWK
     Route: 065
  5. ACITRETIN [Concomitant]
     Active Substance: ACITRETIN
     Dosage: 25 MILLIGRAM, QD
     Route: 065

REACTIONS (3)
  - Septic shock [Unknown]
  - Herpes ophthalmic [Unknown]
  - Off label use [Unknown]
